FAERS Safety Report 8780785 (Version 1)
Quarter: 2012Q4

REPORT INFORMATION
  Report Type: 
  Country: US (occurrence: US)
  Receive Date: 20120913
  Receipt Date: 20120913
  Transmission Date: 20130627
  Serious: No
  Sender: FDA-Public Use
  Company Number: US-TEVA-358073USA

PATIENT
  Sex: Female

DRUGS (3)
  1. NUVIGIL [Suspect]
  2. PROVIGIL [Concomitant]
     Indication: SOMNOLENCE
  3. PROVIGIL [Concomitant]
     Indication: DEPRESSION

REACTIONS (1)
  - Therapeutic response unexpected [Unknown]
